FAERS Safety Report 10025679 (Version 1)
Quarter: 2014Q1

REPORT INFORMATION
  Report Type: Spontaneous
  Country: US (occurrence: US)
  Receive Date: 20140320
  Receipt Date: 20140320
  Transmission Date: 20141002
  Serious: Yes (Other)
  Sender: FDA-Public Use
  Company Number: US-BAYER-2014-039011

PATIENT
  Age: 78 Year
  Sex: Female
  Weight: 82 kg

DRUGS (7)
  1. BAYER CHEWABLE LOW DOSE BABY ASPIRIN TABLET ORANGE [Suspect]
     Indication: TRANSIENT ISCHAEMIC ATTACK
     Dosage: 2 DF, ONCE
     Dates: start: 20131208, end: 20131208
  2. BAYER CHEWABLE LOW DOSE BABY ASPIRIN TABLET ORANGE [Suspect]
     Indication: CEREBROVASCULAR ACCIDENT PROPHYLAXIS
     Dosage: 1 DF, QD
     Route: 048
     Dates: start: 20131211
  3. BAYER CHEWABLE LOW DOSE BABY ASPIRIN TABLET ORANGE [Suspect]
     Indication: TRANSIENT ISCHAEMIC ATTACK
     Dosage: 1 DF, QOD
     Route: 048
  4. BAYER CHEWABLE LOW DOSE BABY ASPIRIN TABLET ORANGE [Suspect]
     Indication: TRANSIENT ISCHAEMIC ATTACK
     Dosage: 1/2 DF, QD
     Route: 048
  5. BAYER CHEWABLE LOW DOSE BABY ASPIRIN TABLET ORANGE [Suspect]
     Indication: TRANSIENT ISCHAEMIC ATTACK
     Dosage: 0.5 DF, QOD
     Route: 048
  6. BAYER CHEWABLE LOW DOSE BABY ASPIRIN TABLET ORANGE [Suspect]
     Indication: TRANSIENT ISCHAEMIC ATTACK
     Dosage: 1 DF, BID
     Route: 048
  7. BENICAR [Concomitant]

REACTIONS (4)
  - Transient ischaemic attack [None]
  - Epistaxis [Recovered/Resolved]
  - Off label use [None]
  - Off label use [None]
